FAERS Safety Report 7948913-8 (Version None)
Quarter: 2011Q4

REPORT INFORMATION
  Report Type: 
  Country: None (occurrence: None)
  Receive Date: 20111130
  Receipt Date: 20111124
  Transmission Date: 20120403
  Serious: Yes (Other)
  Sender: FDA-Public Use
  Company Number: PHHY2011BR103504

PATIENT
  Sex: Female

DRUGS (12)
  1. RITALIN [Suspect]
     Indication: MEMORY IMPAIRMENT
  2. RITALIN [Suspect]
     Indication: ATTENTION DEFICIT/HYPERACTIVITY DISORDER
  3. RITALIN [Suspect]
     Indication: EATING DISORDER
  4. CARBOLITIUM [Concomitant]
     Indication: MEMORY IMPAIRMENT
  5. GAMMAR [Concomitant]
     Dosage: 1 TAB, MORNING
  6. ALPRAZOLAM [Concomitant]
     Dosage: 1 TAB, DAILY
  7. CARBOLITIUM [Concomitant]
     Indication: ATTENTION DEFICIT/HYPERACTIVITY DISORDER
  8. CARBOLITIUM [Concomitant]
     Indication: ANXIETY
     Dosage: 1 TAB, IN NIGHT
  9. LOSARTAN POTASSIUM [Concomitant]
     Indication: BLOOD PRESSURE
     Dosage: 1 TAB, DAILY
  10. RITALIN [Suspect]
     Indication: ANXIETY
     Dosage: 1 TAB, DAILY
  11. LEVOID [Concomitant]
     Indication: THYROID DISORDER
  12. CARBOLITIUM [Concomitant]
     Indication: EATING DISORDER

REACTIONS (2)
  - DIVERTICULITIS [None]
  - URINARY TRACT INFECTION [None]
